FAERS Safety Report 11746547 (Version 7)
Quarter: 2017Q1

REPORT INFORMATION
  Report Type: Spontaneous
  Country: US (occurrence: US)
  Receive Date: 20151117
  Receipt Date: 20170117
  Transmission Date: 20170428
  Serious: Yes (Congenital Anomaly, Other)
  Sender: FDA-Public Use
  Company Number: PHEH2015US023755

PATIENT
  Sex: Male

DRUGS (2)
  1. ONDANSETRON HYDROCHLORIDE. [Suspect]
     Active Substance: ONDANSETRON HYDROCHLORIDE
     Indication: FOETAL EXPOSURE DURING PREGNANCY
     Dosage: MOTHER^S DOSE: 4 MG, PRN
     Route: 064
  2. ZOFRAN [Suspect]
     Active Substance: ONDANSETRON HYDROCHLORIDE
     Indication: FOETAL EXPOSURE DURING PREGNANCY
     Dosage: MOTHER DOSE: 4 MG, PRN
     Route: 064

REACTIONS (16)
  - Cardiac septal defect [Unknown]
  - Asthma [Unknown]
  - Heart disease congenital [Unknown]
  - Foetal exposure during pregnancy [Unknown]
  - Congenital anomaly [Unknown]
  - Pain [Unknown]
  - Injury [Unknown]
  - Developmental delay [Unknown]
  - Anhedonia [Unknown]
  - Emotional distress [Unknown]
  - Learning disability [Unknown]
  - Anxiety [Unknown]
  - Multiple congenital abnormalities [Unknown]
  - Autism spectrum disorder [Unknown]
  - Cardiac murmur [Unknown]
  - Speech disorder [Unknown]
